FAERS Safety Report 4984550-5 (Version None)
Quarter: 2006Q2

REPORT INFORMATION
  Report Type: 
  Country: None (occurrence: None)
  Receive Date: 20060427
  Receipt Date: 20050401
  Transmission Date: 20061013
  Serious: No
  Sender: FDA-Public Use
  Company Number: US-GLAXOSMITHKLINE-A0552339A

PATIENT
  Age: 46 Year
  Sex: Male

DRUGS (4)
  1. DEXEDRINE [Suspect]
     Indication: NARCOLEPSY
     Dosage: 100MG THREE TIMES PER DAY
     Route: 048
  2. EXCEDRIN (MIGRAINE) [Concomitant]
  3. SAW PALMETTO [Concomitant]
  4. ZINC [Concomitant]

REACTIONS (5)
  - AGITATION [None]
  - DYSGEUSIA [None]
  - ILL-DEFINED DISORDER [None]
  - MOOD ALTERED [None]
  - PHARMACEUTICAL PRODUCT COMPLAINT [None]
